FAERS Safety Report 20035529 (Version 2)
Quarter: 2021Q4

REPORT INFORMATION
  Report Type: Spontaneous
  Country: JP (occurrence: JP)
  Receive Date: 20211104
  Receipt Date: 20211121
  Transmission Date: 20220303
  Serious: Yes (Hospitalization, Disabling, Other)
  Sender: FDA-Public Use
  Company Number: JP-ONO-2021JP022705

PATIENT
  Age: 88 Year
  Sex: Male
  Weight: 76.5 kg

DRUGS (16)
  1. SITAGLIPTIN [Suspect]
     Active Substance: SITAGLIPTIN
     Indication: Type 2 diabetes mellitus
     Dosage: 50 MG, EVERYDAY
     Route: 048
  2. KEYTRUDA [Suspect]
     Active Substance: PEMBROLIZUMAB
     Indication: Malignant melanoma
     Dosage: UNK
     Route: 065
     Dates: start: 20210625, end: 20210806
  3. OPDIVO [Suspect]
     Active Substance: NIVOLUMAB
     Indication: Malignant melanoma
     Dosage: 80 MG
     Route: 041
     Dates: start: 20210827
  4. OPDIVO [Suspect]
     Active Substance: NIVOLUMAB
     Dosage: 80 MG
     Route: 041
     Dates: start: 20210924
  5. YERVOY [Suspect]
     Active Substance: IPILIMUMAB
     Indication: Malignant melanoma
     Dosage: 227.7 MG
     Route: 041
     Dates: start: 20210827
  6. YERVOY [Suspect]
     Active Substance: IPILIMUMAB
     Dosage: 227.7 MG
     Route: 041
     Dates: start: 20210924
  7. BENIDIPINE HYDROCHLORIDE [Concomitant]
     Active Substance: BENIDIPINE HYDROCHLORIDE
     Dosage: 4 MG
     Route: 048
  8. METHYLCOBALAMIN [Concomitant]
     Active Substance: METHYLCOBALAMIN
     Dosage: 500 MG, Q8H
     Route: 048
     Dates: start: 20210805
  9. PREGABALIN [Concomitant]
     Active Substance: PREGABALIN
     Dosage: 75 MG, Q12H
     Route: 048
     Dates: start: 20210805
  10. ALLOPURINOL [Concomitant]
     Active Substance: ALLOPURINOL
     Dosage: 100 MG, EVERYDAY
     Route: 048
  11. SIMVASTATIN [Concomitant]
     Active Substance: SIMVASTATIN
     Dosage: 5 MG, EVERYDAY
     Route: 048
  12. AMLODIPINE BESYLATE\VALSARTAN [Concomitant]
     Active Substance: AMLODIPINE BESYLATE\VALSARTAN
     Dosage: UNK, EVERYDAY
     Route: 048
  13. RABEPRAZOLE SODIUM [Concomitant]
     Active Substance: RABEPRAZOLE SODIUM
     Dosage: 10 MG, EVERYDAY
     Route: 048
  14. NOVORAPID [Concomitant]
     Active Substance: INSULIN ASPART
     Dosage: 5 DF, Q8H
     Route: 058
  15. LANTUS [Concomitant]
     Active Substance: INSULIN GLARGINE
     Dosage: 10 DF, EVERYDAY
     Route: 058
  16. ACETAMINOPHEN [Concomitant]
     Active Substance: ACETAMINOPHEN
     Indication: Polymyalgia rheumatica
     Dosage: UNK
     Route: 065
     Dates: start: 20210811

REACTIONS (2)
  - Polymyalgia rheumatica [Recovering/Resolving]
  - Colitis [Recovering/Resolving]

NARRATIVE: CASE EVENT DATE: 20210903
